FAERS Safety Report 14321324 (Version 1)
Quarter: 2017Q4

REPORT INFORMATION
  Report Type: Report from Study
  Country: BE (occurrence: BE)
  Receive Date: 20171223
  Receipt Date: 20171223
  Transmission Date: 20180321
  Serious: Yes (Hospitalization, Other)
  Sender: FDA-Public Use
  Company Number: PHHY2017BE147167

PATIENT
  Age: 51 Year
  Sex: Female

DRUGS (2)
  1. AFINITOR [Suspect]
     Active Substance: EVEROLIMUS
     Indication: BREAST CANCER
     Dosage: 10 MG, QD
     Route: 048
     Dates: start: 20170929, end: 20171013
  2. AFINITOR [Suspect]
     Active Substance: EVEROLIMUS
     Dosage: D1D2D3: D1-5MG, D2-10MG D3-NO AFINITOR
     Route: 048
     Dates: start: 20171020, end: 20171121

REACTIONS (24)
  - Drug resistance [Recovered/Resolved]
  - Papule [Recovering/Resolving]
  - Monoplegia [Recovered/Resolved]
  - Feeling cold [Not Recovered/Not Resolved]
  - Hernia pain [Not Recovered/Not Resolved]
  - Nightmare [Not Recovered/Not Resolved]
  - Swelling face [Recovering/Resolving]
  - Metastases to neck [Not Recovered/Not Resolved]
  - Eyelid oedema [Not Recovered/Not Resolved]
  - Dermatitis allergic [Recovering/Resolving]
  - Dry mouth [Not Recovered/Not Resolved]
  - Insomnia [Not Recovered/Not Resolved]
  - Nausea [Not Recovered/Not Resolved]
  - Pruritus [Not Recovered/Not Resolved]
  - Dry skin [Recovering/Resolving]
  - Alopecia [Not Recovered/Not Resolved]
  - Concomitant disease aggravated [Unknown]
  - Eating disorder [Recovered/Resolved]
  - Gingival pain [Not Recovered/Not Resolved]
  - Cough [Not Recovered/Not Resolved]
  - Vomiting [Recovered/Resolved]
  - Skin burning sensation [Recovering/Resolving]
  - Paraesthesia [Unknown]
  - Fatigue [Not Recovered/Not Resolved]

NARRATIVE: CASE EVENT DATE: 20170929
